FAERS Safety Report 19726084 (Version 1)
Quarter: 2021Q3

REPORT INFORMATION
  Report Type: Spontaneous
  Country: DE (occurrence: DE)
  Receive Date: 20210819
  Receipt Date: 20210819
  Transmission Date: 20211014
  Serious: Yes (Other)
  Sender: FDA-Public Use
  Company Number: DE-GILEAD-2021-0544501

PATIENT
  Sex: Female

DRUGS (1)
  1. HARVONI [Suspect]
     Active Substance: LEDIPASVIR\SOFOSBUVIR
     Indication: CHRONIC HEPATITIS C
     Dosage: UNK
     Route: 065

REACTIONS (7)
  - Thirst [Recovered/Resolved]
  - Angina pectoris [Recovered/Resolved]
  - Disturbance in attention [Recovered/Resolved]
  - Oral discomfort [Recovered/Resolved]
  - Fatigue [Recovered/Resolved]
  - Gastritis [Recovered/Resolved]
  - Burning sensation [Recovered/Resolved]
